FAERS Safety Report 6023909-4 (Version None)
Quarter: 2008Q4

REPORT INFORMATION
  Report Type: 
  Country: None (occurrence: None)
  Receive Date: 20081230
  Receipt Date: 20081222
  Transmission Date: 20090506
  Serious: Yes (Other)
  Sender: FDA-Public Use
  Company Number: US-BAXTER-2007BH008623

PATIENT
  Age: 72 Year
  Sex: Female
  Weight: 134 kg

DRUGS (5)
  1. ENDOXAN BAXTER [Suspect]
     Indication: B-CELL LYMPHOMA
     Route: 065
     Dates: start: 20070606, end: 20070907
  2. PROCRIT [Suspect]
     Indication: ANAEMIA OF MALIGNANT DISEASE
     Route: 058
     Dates: start: 20070813, end: 20070820
  3. PROCRIT [Suspect]
     Route: 058
     Dates: start: 20070613, end: 20070806
  4. RITUXAN [Suspect]
     Indication: B-CELL LYMPHOMA
     Route: 065
     Dates: start: 20070606, end: 20070907
  5. FLUDARA [Suspect]
     Indication: B-CELL LYMPHOMA
     Route: 065
     Dates: start: 20070606, end: 20070907

REACTIONS (3)
  - DRUG INEFFECTIVE [None]
  - DRUG SPECIFIC ANTIBODY ABSENT [None]
  - PANCYTOPENIA [None]
